FAERS Safety Report 9338310 (Version 2)
Quarter: 2013Q2

REPORT INFORMATION
  Report Type: Spontaneous
  Country: US (occurrence: US)
  Receive Date: 20130610
  Receipt Date: 20130628
  Transmission Date: 20140414
  Serious: Yes (Other)
  Sender: FDA-Public Use
  Company Number: US-PFIZER INC-2013171718

PATIENT
  Age: 77 Year
  Sex: Male

DRUGS (10)
  1. INLYTA [Suspect]
     Indication: RENAL CELL CARCINOMA
     Dosage: 7 MG, 2X/DAY (1-5 MG AND 2-1 MG)
     Route: 048
     Dates: start: 20120604
  2. INLYTA [Suspect]
     Indication: RENAL CANCER
  3. XGEVA [Concomitant]
     Dosage: UNK
  4. PRILOSEC [Concomitant]
     Dosage: UNK
  5. NASONEX [Concomitant]
     Dosage: UNK
  6. ENOXAPARIN [Concomitant]
     Dosage: UNK
  7. VYTORIN [Concomitant]
     Dosage: UNK
  8. PENTOXIFYLLINE CR [Concomitant]
     Dosage: UNK
  9. SINGULAIR [Concomitant]
     Dosage: UNK
  10. PLAVIX [Concomitant]
     Dosage: UNK

REACTIONS (1)
  - Diarrhoea [Unknown]
